FAERS Safety Report 8903899 (Version 1)
Quarter: 2012Q4

REPORT INFORMATION
  Report Type: 
  Country: FR (occurrence: FR)
  Receive Date: 20121112
  Receipt Date: 20121112
  Transmission Date: 20130627
  Serious: Yes (Hospitalization)
  Sender: FDA-Public Use
  Company Number: FR-B.I. PHARMACEUTICALS,INC./RIDGEFIELD-2012-FF-01575FF

PATIENT
  Age: 90 Year
  Sex: Male

DRUGS (3)
  1. JOSIR [Suspect]
     Dosage: 0.4 mg
     Route: 048
     Dates: start: 20120817, end: 20120823
  2. NISIS [Suspect]
     Dosage: 80 mg
     Route: 048
     Dates: end: 20120925
  3. CLAMOXYL [Suspect]
     Route: 048
     Dates: end: 20120812

REACTIONS (1)
  - Neutropenia [Recovered/Resolved]
